FAERS Safety Report 6073971-8 (Version None)
Quarter: 2009Q1

REPORT INFORMATION
  Report Type: 
  Country: None (occurrence: None)
  Receive Date: 20090211
  Receipt Date: 20090205
  Transmission Date: 20090719
  Serious: Yes (Death, Hospitalization, Other)
  Sender: FDA-Public Use
  Company Number: PHBS2009US00765

PATIENT
  Age: 40 Year
  Sex: Male

DRUGS (6)
  1. CYCLOSPORINE [Suspect]
     Indication: LIVER TRANSPLANT
  2. SIROLIMUS [Suspect]
     Indication: LIVER TRANSPLANT
  3. PREDNISONE [Suspect]
     Indication: LIVER TRANSPLANT
  4. INTERFERON ALFA-2B [Suspect]
     Indication: HEPATITIS C
     Dosage: 1.5-3.0 MILLION UNITS THREE TIMES WEEKLY
  5. RIBAVIRIN [Suspect]
     Indication: HEPATITIS C
     Dosage: 200- 1200 MG/DAY
  6. GLYBURIDE [Concomitant]
     Indication: DIABETES MELLITUS

REACTIONS (22)
  - BLINDNESS [None]
  - DEBRIDEMENT [None]
  - DIABETES MELLITUS [None]
  - DIPLOPIA [None]
  - ETHMOID SINUS SURGERY [None]
  - EXOPHTHALMOS [None]
  - EYE OPERATION [None]
  - EYE PAIN [None]
  - HAEMOLYTIC ANAEMIA [None]
  - HEADACHE [None]
  - HEPATIC FIBROSIS [None]
  - HEPATITIS C [None]
  - LIVER TRANSPLANT REJECTION [None]
  - NEUTROPENIA [None]
  - OPHTHALMOPLEGIA [None]
  - ORBITAL APEX SYNDROME [None]
  - PELVIC NEOPLASM [None]
  - PYREXIA [None]
  - RENAL FAILURE [None]
  - SINUS DISORDER [None]
  - SPHENOID SINUS OPERATION [None]
  - ZYGOMYCOSIS [None]
